FAERS Safety Report 12200457 (Version 2)
Quarter: 2016Q1

REPORT INFORMATION
  Report Type: Spontaneous
  Country: US (occurrence: US)
  Receive Date: 20160322
  Receipt Date: 20160329
  Transmission Date: 20160526
  Serious: Yes (Other)
  Sender: FDA-Public Use
  Company Number: US-TEVA-645399USA

PATIENT
  Age: 79 Year
  Sex: Female

DRUGS (1)
  1. ZECUITY [Suspect]
     Active Substance: SUMATRIPTAN SUCCINATE
     Dosage: 6.5MG/4 HOURS
     Route: 062
     Dates: start: 20160226, end: 20160226

REACTIONS (2)
  - Application site pain [Unknown]
  - Application site burn [Unknown]

NARRATIVE: CASE EVENT DATE: 20160226
